FAERS Safety Report 17495196 (Version 1)
Quarter: 2020Q1

REPORT INFORMATION
  Report Type: Spontaneous
  Country: US (occurrence: US)
  Receive Date: 20200304
  Receipt Date: 20200304
  Transmission Date: 20200409
  Serious: Yes (Hospitalization)
  Sender: FDA-Public Use
  Company Number: US-PFIZER INC-2020091466

PATIENT
  Age: 49 Year
  Sex: Female
  Weight: 95.25 kg

DRUGS (1)
  1. PREMPHASE [Suspect]
     Active Substance: ESTROGENS, CONJUGATED\MEDROXYPROGESTERONE ACETATE
     Indication: MENOPAUSAL SYMPTOMS
     Dosage: 0.625 MG, DAILY
     Route: 048
     Dates: start: 20191004, end: 20191029

REACTIONS (3)
  - Ejection fraction decreased [Recovering/Resolving]
  - Arterial thrombosis [Recovering/Resolving]
  - Acute myocardial infarction [Recovered/Resolved]

NARRATIVE: CASE EVENT DATE: 20191029
